FAERS Safety Report 9961009 (Version 1)
Quarter: 2014Q1

REPORT INFORMATION
  Report Type: Report from Study
  Country: US (occurrence: US)
  Receive Date: 20140305
  Receipt Date: 20140305
  Transmission Date: 20141002
  Serious: No
  Sender: FDA-Public Use
  Company Number: US-ABBVIE-13P-163-1109636-00

PATIENT
  Age: 60 Year
  Sex: Female

DRUGS (5)
  1. HUMIRA [Suspect]
     Indication: RHEUMATOID ARTHRITIS
     Dates: start: 20130103
  2. MULTIVITAMINS [Concomitant]
     Indication: PRODUCT USED FOR UNKNOWN INDICATION
     Dosage: DAILY
  3. AMLOPIDINE [Concomitant]
     Indication: BLOOD PRESSURE
     Dosage: 5 MG EVERY DAY
  4. LOSARTAN [Concomitant]
     Indication: PRODUCT USED FOR UNKNOWN INDICATION
     Dosage: 12.5 MG EVERYDAY
  5. BUPROPION HCL XL [Concomitant]
     Indication: MOOD SWINGS
     Dosage: 150 MG THREE TIMES A DAY

REACTIONS (2)
  - Fatigue [Unknown]
  - Nausea [Unknown]
